FAERS Safety Report 23228878 (Version 1)
Quarter: 2023Q4

REPORT INFORMATION
  Report Type: Spontaneous
  Country: US (occurrence: None)
  Receive Date: 20231126
  Receipt Date: 20231126
  Transmission Date: 20240110
  Serious: No
  Sender: FDA-Public Use
  Company Number: US-ROCHE-3225505

PATIENT
  Sex: Female

DRUGS (2)
  1. HERCEPTIN [Suspect]
     Active Substance: TRASTUZUMAB
     Indication: Breast cancer
     Dosage: FORM STRENGTH: 150MG/VL  480MG  IV PIGGYBACK AS INITIAL LOADING DOSE THEN 360 MG EVERY 3 WEEKS
     Route: 041
     Dates: start: 202211
  2. PERJETA [Suspect]
     Active Substance: PERTUZUMAB
     Indication: Breast cancer
     Dosage: FORM STRENGTH: 420MG/14ML  INFUSE 840MG INTRAVENOUSLY OVER 60 MINS ONE TIME FOR LOADING DOSE.
     Route: 042
     Dates: start: 202211

REACTIONS (1)
  - Alopecia [Unknown]
